FAERS Safety Report 13565361 (Version 1)
Quarter: 2017Q2

REPORT INFORMATION
  Report Type: Report from Study
  Country: KR (occurrence: KR)
  Receive Date: 20170519
  Receipt Date: 20170519
  Transmission Date: 20170830
  Serious: Yes (Hospitalization, Other)
  Sender: FDA-Public Use
  Company Number: KR-UCBSA-019530

PATIENT
  Age: 52 Year
  Sex: Female
  Weight: 50 kg

DRUGS (101)
  1. CERTOLIZUMAB PEGOL RA [Suspect]
     Active Substance: CERTOLIZUMAB PEGOL
     Indication: RHEUMATOID ARTHRITIS
     Dosage: 200 MG, EV 2 WEEKS(QOW)
     Route: 058
     Dates: start: 20100428, end: 20100721
  2. METHYLPREDNISOLONE SODIUM SUCCINATE. [Concomitant]
     Active Substance: METHYLPREDNISOLONE SODIUM SUCCINATE
     Dosage: 62.5 MG, ONCE DAILY (QD)
     Route: 042
     Dates: start: 20100822, end: 20100825
  3. FERROUS SULFATE. [Concomitant]
     Active Substance: FERROUS SULFATE
     Indication: HAEMOGLOBIN DECREASED
     Dosage: 256 MG, 2X/DAY (BID)
     Route: 048
     Dates: start: 20090624, end: 20100813
  4. CALCIUM - D - VITAMIN [Concomitant]
     Indication: PROPHYLAXIS
     Dosage: 1 TABLET ONCE A DAY
     Route: 048
     Dates: start: 20100107, end: 20100813
  5. METFORMIN HYDROCHLORIDE. [Concomitant]
     Active Substance: METFORMIN HYDROCHLORIDE
     Indication: DIABETES MELLITUS
     Dosage: 500 MG, ONCE DAILY (QD)
     Route: 048
     Dates: start: 20091127, end: 20100813
  6. NORMAL SALINE [Concomitant]
     Active Substance: SODIUM CHLORIDE
     Dosage: 0.9% NORMAL SALINE
     Route: 042
     Dates: start: 20100908, end: 20100908
  7. HUMAN INSULIN [Concomitant]
     Active Substance: INSULIN HUMAN
     Dosage: 10 UNITS ONCE A DAY
     Route: 042
     Dates: start: 20100819, end: 20100823
  8. PROPACETAMOL HYDROCHLORIDE [Concomitant]
     Active Substance: PROPACETAMOL HYDROCHLORIDE
     Dosage: 1 G, 3X/DAY (TID)
     Route: 042
     Dates: start: 20100816, end: 20100816
  9. PROPACETAMOL HYDROCHLORIDE [Concomitant]
     Active Substance: PROPACETAMOL HYDROCHLORIDE
     Dosage: 1 G, ONCE DAILY (QD)
     Route: 042
     Dates: start: 20100819, end: 20100819
  10. PLATELETS [Concomitant]
     Active Substance: HUMAN PLATELET, ALLOGENIC
     Dosage: 8 UNITS ONCE A DAY
     Route: 042
     Dates: start: 20100819, end: 20100824
  11. PACKED RBC [Concomitant]
     Indication: RED BLOOD CELL COUNT DECREASED
     Dosage: 2 UNITS ONCE A DAY
     Route: 042
     Dates: start: 20100815, end: 20100816
  12. PACKED RBC [Concomitant]
     Dosage: 1 UNIT ONCE A DAY
     Route: 042
     Dates: start: 20100928, end: 20100929
  13. 10% BISOL [Concomitant]
     Dosage: 500 MG, ONCE DAILY (QD)
     Route: 042
     Dates: start: 20100927, end: 20100927
  14. TABACTAN [Concomitant]
     Indication: COLITIS
     Dosage: 2.25 G, 4X/DAY (QID)
     Route: 042
     Dates: start: 20100817, end: 20100830
  15. SMOFLIPID [Concomitant]
     Active Substance: FISH OIL\MEDIUM-CHAIN TRIGLYCERIDES\OLIVE OIL\SOYBEAN OIL
     Indication: NUTRITIONAL SUPPLEMENTATION
     Dosage: 500 ML, ONCE DAILY (QD)
     Route: 042
     Dates: start: 20100817, end: 20100817
  16. BENZYDAMINE HYDROCHLORIDE [Concomitant]
     Active Substance: BENZYDAMINE HYDROCHLORIDE
     Indication: ORAL CANDIDIASIS
     Dosage: GARGLE
     Dates: start: 20100817, end: 20100830
  17. CALCIUM - D - VITAMIN [Concomitant]
     Dosage: 1 TABLET ONCE A DAY
     Route: 048
     Dates: start: 20100917
  18. ATORVASTATIN [Concomitant]
     Active Substance: ATORVASTATIN
     Dosage: 20 MG, ONCE DAILY (QD)
     Route: 048
     Dates: start: 20101015
  19. NORMAL SALINE [Concomitant]
     Active Substance: SODIUM CHLORIDE
     Indication: FLUID REPLACEMENT
     Dosage: 0.9% NORMAL SALINE
     Route: 042
     Dates: start: 20100814, end: 20100815
  20. DEXTROSE. [Concomitant]
     Active Substance: DEXTROSE
     Dosage: 10% DEXTROSE
     Route: 042
     Dates: start: 20100818, end: 20100906
  21. DEXTROSE. [Concomitant]
     Active Substance: DEXTROSE
     Dosage: 10% DEXTROSE
     Route: 042
     Dates: start: 20100928, end: 20100930
  22. HUMAN INSULIN [Concomitant]
     Active Substance: INSULIN HUMAN
     Dosage: 22 UNITS ONCE A DAY
     Route: 042
     Dates: start: 20100825, end: 20100829
  23. CEFOTAXIME SODIUM [Concomitant]
     Active Substance: CEFOTAXIME SODIUM
     Indication: COLITIS
     Dosage: 2 G, 2X/DAY (BID)
     Route: 042
     Dates: start: 20100815, end: 20100815
  24. PROPACETAMOL HYDROCHLORIDE [Concomitant]
     Active Substance: PROPACETAMOL HYDROCHLORIDE
     Dosage: 1 G, ONCE DAILY (QD)
     Route: 042
     Dates: start: 20100817, end: 20100817
  25. PROPACETAMOL HYDROCHLORIDE [Concomitant]
     Active Substance: PROPACETAMOL HYDROCHLORIDE
     Dosage: 1 G, ONCE DAILY (QD)
     Route: 042
     Dates: start: 20100825, end: 20100825
  26. PLATELETS [Concomitant]
     Active Substance: HUMAN PLATELET, ALLOGENIC
     Indication: PLATELET TRANSFUSION
     Dosage: 8 UNITS ONCE A DAY
     Route: 042
     Dates: start: 20100815, end: 20100817
  27. 10% BISOL [Concomitant]
     Indication: NUTRITIONAL SUPPLEMENTATION
     Dosage: 500 ML, ONCE DAILY (QD)
     Route: 042
     Dates: start: 20100816, end: 20100816
  28. SMOFLIPID [Concomitant]
     Active Substance: FISH OIL\MEDIUM-CHAIN TRIGLYCERIDES\OLIVE OIL\SOYBEAN OIL
     Dosage: 250 ML, 2X/DAY (BID)
     Route: 042
     Dates: start: 20101001, end: 20101001
  29. PIROXICAM. [Concomitant]
     Active Substance: PIROXICAM
     Indication: RHEUMATOID ARTHRITIS
     Dosage: 48 MG, AS NEEDED (PRN)
     Route: 061
     Dates: start: 20100203, end: 20100813
  30. HYDROCORTISONE SODIUM SUCCINATE [Concomitant]
     Active Substance: HYDROCORTISONE SODIUM SUCCINATE
     Dosage: 100 MG, ONCE DAILY (QD)
     Route: 042
     Dates: start: 20100929, end: 20100929
  31. METHYLPREDNISOLONE SODIUM SUCCINATE. [Concomitant]
     Active Substance: METHYLPREDNISOLONE SODIUM SUCCINATE
     Indication: RHEUMATOID ARTHRITIS
     Dosage: 125 MG, ONCE DAILY (QD)
     Route: 042
     Dates: start: 20100819, end: 20100821
  32. METHYLPREDNISOLONE SODIUM SUCCINATE. [Concomitant]
     Active Substance: METHYLPREDNISOLONE SODIUM SUCCINATE
     Dosage: 31.25 MG, ONCE DAILY (QD)
     Route: 042
     Dates: start: 20100826, end: 20100827
  33. ETANERCEPT [Concomitant]
     Active Substance: ETANERCEPT
     Indication: RHEUMATOID ARTHRITIS
     Dosage: 50 MG, WEEKLY (QW)
     Route: 058
     Dates: start: 20100909
  34. REBAMPIDE [Concomitant]
     Indication: PROPHYLAXIS
     Dosage: 100 MG, 2X/DAY (BID)
     Route: 048
     Dates: start: 20010604, end: 20100813
  35. SODIUM CHLORIDE. [Concomitant]
     Active Substance: SODIUM CHLORIDE
     Dosage: 40 ML, ONCE DAILY (QD)
     Route: 042
     Dates: start: 20100818, end: 20100909
  36. POTASSIUM CHLORIDE. [Concomitant]
     Active Substance: POTASSIUM CHLORIDE
     Dosage: 10 ML, ONCE DAILY (QD)
     Route: 042
     Dates: start: 20100818, end: 20100909
  37. INSULIN LISPRO [Concomitant]
     Active Substance: INSULIN LISPRO
     Dosage: 4 UNITS TWICE A DAY
     Route: 058
     Dates: start: 20100822, end: 20100822
  38. PACKED RBC [Concomitant]
     Dosage: 2 UNITS ONCE A DAY
     Route: 042
     Dates: start: 20100818, end: 20100818
  39. LENOGRASTION [Concomitant]
     Indication: NEUTROPENIA
     Dosage: 250 ?G, ONCE DAILY (QD)
     Route: 042
     Dates: start: 20100816, end: 20100821
  40. ACETYLCYSTEINE. [Concomitant]
     Active Substance: ACETYLCYSTEINE
     Indication: PROPHYLAXIS
     Dosage: 600 MG, ONCE DAILY (QD)
     Route: 042
     Dates: start: 20100901, end: 20100901
  41. MELOXICAM. [Concomitant]
     Active Substance: MELOXICAM
     Indication: RHEUMATOID ARTHRITIS
     Dosage: 7.5 MG, 2X/DAY (BID)
     Route: 048
     Dates: start: 20010604, end: 20100813
  42. METHYLPREDNISOLONE SODIUM SUCCINATE. [Concomitant]
     Active Substance: METHYLPREDNISOLONE SODIUM SUCCINATE
     Dosage: 15.625 MG, ONCE DAILY (QD)
     Route: 042
     Dates: start: 20100902, end: 20100903
  43. ASPIRIN. [Concomitant]
     Active Substance: ASPIRIN
     Dosage: 100 MG, ONCE DAILY (QD)
     Route: 048
     Dates: start: 20101015
  44. NORMAL SALINE [Concomitant]
     Active Substance: SODIUM CHLORIDE
     Dosage: 0.9% NORMAL SALINE
     Route: 042
     Dates: start: 20100928, end: 20100930
  45. HARTMANN SOLUTION [Concomitant]
     Indication: FLUID REPLACEMENT
     Dosage: 1000 ML, ONCE DAILY (QD)
     Route: 042
     Dates: start: 20100814, end: 20100814
  46. SODIUM CHLORIDE. [Concomitant]
     Active Substance: SODIUM CHLORIDE
     Indication: FLUID REPLACEMENT
     Dosage: 40 ML, 2X/DAY (BID)
     Route: 042
     Dates: start: 20100814, end: 20100817
  47. SODIUM CHLORIDE. [Concomitant]
     Active Substance: SODIUM CHLORIDE
     Dosage: 40 ML, ONCE DAILY (QD)
     Route: 042
     Dates: start: 20100929, end: 20100930
  48. HUMAN INSULIN [Concomitant]
     Active Substance: INSULIN HUMAN
     Dosage: 20 UNITS ONCE A DAY
     Route: 042
     Dates: start: 20100824, end: 20100824
  49. HUMAN INSULIN [Concomitant]
     Active Substance: INSULIN HUMAN
     Dosage: 20 UNITS ONCE A DAY
     Route: 042
     Dates: start: 20100830, end: 20100901
  50. COLONLYTE [Concomitant]
     Indication: ENDOSCOPY
     Dosage: 4 ML, ONCE DAILY (QD)
     Route: 048
     Dates: start: 20100815, end: 20100815
  51. SODIUM HYALURONATE [Concomitant]
     Active Substance: HYALURONATE SODIUM
     Indication: BLEPHARITIS
     Dosage: ROUTE: EYE
     Dates: start: 20100906, end: 20100910
  52. FLUOCINOLONE ACETONIDE. [Concomitant]
     Active Substance: FLUOCINOLONE ACETONIDE
     Indication: ORAL CANDIDIASIS
     Dosage: 10 G, AS NEEDED (PRN)
     Route: 061
     Dates: start: 20100820, end: 20100830
  53. NEPHRAMINE [Concomitant]
     Active Substance: CYSTEINE\CYSTEINE HYDROCHLORIDE\HISTIDINE\ISOLEUCINE\LEUCINE\LYSINE\LYSINE ACETATE\METHIONINE\PHENYLALANINE\SODIUM BISULFITE\THREONINE\TRYPTOPHAN\VALINE
     Indication: NUTRITIONAL SUPPLEMENTATION
     Dosage: 250 ML, ONCE DAILY (QD)
     Route: 042
     Dates: start: 20100928, end: 20100928
  54. METHOTREXATE. [Concomitant]
     Active Substance: METHOTREXATE
     Dosage: 7.5 MG, WEEKLY (QW)
     Route: 048
     Dates: start: 20100909
  55. DEFLAZACORT [Concomitant]
     Active Substance: DEFLAZACORT
     Dosage: 12 MG, ONCE DAILY (QD)
     Route: 048
     Dates: start: 20100904, end: 20100916
  56. FERROUS SULFATE. [Concomitant]
     Active Substance: FERROUS SULFATE
     Dosage: 256 MG, 2X/DAY (BID)
     Route: 048
     Dates: start: 20100917
  57. REBAMPIDE [Concomitant]
     Dosage: 100 MG, 2X/DAY (BID)
     Route: 048
     Dates: start: 20100904
  58. ATORVASTATIN [Concomitant]
     Active Substance: ATORVASTATIN
     Indication: PROPHYLAXIS
     Dosage: 20 MG, ONCE DAILY (QD)
     Route: 048
     Dates: start: 20091127, end: 20100813
  59. ASPIRIN. [Concomitant]
     Active Substance: ASPIRIN
     Indication: PROPHYLAXIS
     Dosage: 100 MG, ONCE DAILY (QD)
     Route: 048
     Dates: start: 20091127, end: 20100813
  60. DEXTROSE. [Concomitant]
     Active Substance: DEXTROSE
     Indication: FLUID REPLACEMENT
     Dosage: 10% DEXTROSE
     Route: 042
     Dates: start: 20100814, end: 20100817
  61. HUMAN INSULIN [Concomitant]
     Active Substance: INSULIN HUMAN
     Dosage: 10 UNITS ONCE A DAY
     Route: 042
     Dates: start: 20100903, end: 20100906
  62. METRONIDAZOLE. [Concomitant]
     Active Substance: METRONIDAZOLE
     Indication: COLITIS
     Dosage: 400 MG, 3X/DAY (TID)
     Route: 042
     Dates: start: 20100815, end: 20100816
  63. PROPACETAMOL HYDROCHLORIDE [Concomitant]
     Active Substance: PROPACETAMOL HYDROCHLORIDE
     Dosage: 1 G, 2X/DAY (BID)
     Route: 042
     Dates: start: 20100818, end: 20100818
  64. INSULIN LISPRO [Concomitant]
     Active Substance: INSULIN LISPRO
     Indication: DIABETES MELLITUS
     Dosage: 6 UNITS
     Route: 058
     Dates: start: 20100815, end: 20100815
  65. INSULIN LISPRO [Concomitant]
     Active Substance: INSULIN LISPRO
     Dosage: 4 UINTS ONCE A DAY
     Route: 058
     Dates: start: 20100824, end: 20100825
  66. 20% ALBUMIN [Concomitant]
     Dosage: 1000 ML, ONCE DAILY (QD)
     Route: 042
     Dates: start: 20100818, end: 20100818
  67. SMOFLIPID [Concomitant]
     Active Substance: FISH OIL\MEDIUM-CHAIN TRIGLYCERIDES\OLIVE OIL\SOYBEAN OIL
     Dosage: 250 ML, ONCE DAILY (QD)
     Route: 042
     Dates: start: 20100929, end: 20100929
  68. TRANEXAMIC ACID. [Concomitant]
     Active Substance: TRANEXAMIC ACID
     Indication: PROPHYLAXIS
     Dosage: 2000 MG, ONCE DAILY (QD)
     Route: 042
     Dates: start: 20100818, end: 20100822
  69. VANCOMYCIN HYDROCHLORIDE. [Concomitant]
     Active Substance: VANCOMYCIN HYDROCHLORIDE
     Indication: MUCOSAL INFLAMMATION
     Dosage: 500 MG, 2X/DAY (BID)
     Route: 042
     Dates: start: 20100819, end: 20100826
  70. MOSAPRIDE CITRATE [Concomitant]
     Active Substance: MOSAPRIDE CITRATE
     Indication: PROPHYLAXIS
     Dosage: 500 MG, 2X/DAY (BID)
     Route: 048
     Dates: start: 20101001, end: 20101010
  71. METFORMIN HYDROCHLORIDE. [Concomitant]
     Active Substance: METFORMIN HYDROCHLORIDE
     Indication: DERMATITIS HERPETIFORMIS
     Dosage: 500 MG, ONCE DAILY (QD)
     Route: 048
     Dates: start: 20101015, end: 20101015
  72. FOLIC ACID. [Concomitant]
     Active Substance: FOLIC ACID
     Dosage: 1 MG, ONCE DAILY (QD)
     Route: 048
     Dates: start: 20100909
  73. DEFLAZACORT [Concomitant]
     Active Substance: DEFLAZACORT
     Dosage: 9 MG, ONCE DAILY (QD)
     Route: 048
     Dates: start: 20100917
  74. HYDROCORTISONE SODIUM SUCCINATE [Concomitant]
     Active Substance: HYDROCORTISONE SODIUM SUCCINATE
     Indication: RHEUMATOID ARTHRITIS
     Dosage: 20 MG, ONCE DAILY (QD)
     Route: 042
     Dates: start: 20100818, end: 20100818
  75. POTASSIUM CHLORIDE. [Concomitant]
     Active Substance: POTASSIUM CHLORIDE
     Indication: FLUID REPLACEMENT
     Dosage: 10 ML, EV 2 DAYS (QOD)
     Route: 042
     Dates: start: 20100814, end: 20100817
  76. HUMAN INSULIN [Concomitant]
     Active Substance: INSULIN HUMAN
     Indication: DIABETES MELLITUS
     Dosage: 20 UN ITS TWICE A DAY
     Route: 042
     Dates: start: 20100814, end: 20100817
  77. HUMAN INSULIN [Concomitant]
     Active Substance: INSULIN HUMAN
     Dosage: 20 UNITS ONCE A DAY
     Route: 042
     Dates: start: 20100818, end: 20100818
  78. PROPACETAMOL HYDROCHLORIDE [Concomitant]
     Active Substance: PROPACETAMOL HYDROCHLORIDE
     Indication: PYREXIA
     Dosage: 2500 MG, AS NEEDED (PRN)
     Route: 042
     Dates: start: 20100815, end: 20100815
  79. TPN [Concomitant]
     Active Substance: AMINO ACIDS\DEXTROSE\ELECTROLYTES NOS\SOYBEAN OIL
     Indication: NUTRITIONAL SUPPLEMENTATION
     Dosage: 1 PACK ONCE A DAY
     Route: 042
     Dates: start: 20100818, end: 20100901
  80. OFLOXACIN. [Concomitant]
     Active Substance: OFLOXACIN
     Indication: BLEPHARITIS
     Dosage: 3.5 G, AS NEEDED (PRN)
     Route: 061
     Dates: start: 20100906, end: 20100910
  81. FOLIC ACID. [Concomitant]
     Active Substance: FOLIC ACID
     Indication: RHEUMATOID ARTHRITIS
     Dosage: 1 MG, ONCE DAILY (QD)
     Route: 048
     Dates: start: 20010604, end: 20100813
  82. METFORMIN HYDROCHLORIDE. [Concomitant]
     Active Substance: METFORMIN HYDROCHLORIDE
     Dosage: 500 MG, ONCE DAILY (QD)
     Route: 048
     Dates: start: 20101015, end: 20101015
  83. NYSTATIN. [Concomitant]
     Active Substance: NYSTATIN
     Indication: ORAL CANDIDIASIS
     Dosage: 5 ML, 3X/DAY (TID)
     Route: 048
     Dates: start: 20100814, end: 20100910
  84. NORMAL SALINE [Concomitant]
     Active Substance: SODIUM CHLORIDE
     Dosage: 0.45% NORMAL SALINE
     Route: 042
     Dates: start: 20100908, end: 20100908
  85. HARTMANN SOLUTION [Concomitant]
     Dosage: 1000 ML, EV 2 DAYS (QOD)
     Route: 042
     Dates: start: 20100927, end: 20100927
  86. PANTOPRAZOLE SODIUM. [Concomitant]
     Active Substance: PANTOPRAZOLE SODIUM
     Indication: PROPHYLAXIS
     Dosage: 40 MG, ONCE DAILY (QD)
     Route: 042
     Dates: start: 20100815, end: 20100816
  87. PROPACETAMOL HYDROCHLORIDE [Concomitant]
     Active Substance: PROPACETAMOL HYDROCHLORIDE
     Dosage: 1 G, ONCE DAILY (QD)
     Route: 042
     Dates: start: 20100822, end: 20100822
  88. CEFTAZIDIME. [Concomitant]
     Active Substance: CEFTAZIDIME
     Indication: COLITIS
     Dosage: 2 G, 2X/DAY (BID)
     Route: 042
     Dates: start: 20100816, end: 20100816
  89. FAMOTIDINE. [Concomitant]
     Active Substance: FAMOTIDINE
     Indication: PROPHYLAXIS
     Dosage: 20 MG, 2X/DAY (BID)
     Route: 042
     Dates: start: 20100807, end: 20100903
  90. LIDOCAINE HYDROCHLORIDE. [Concomitant]
     Active Substance: LIDOCAINE HYDROCHLORIDE
     Indication: ORAL CANDIDIASIS
     Dosage: GARGLE
     Dates: start: 20100817, end: 20100817
  91. METHOTREXATE. [Concomitant]
     Active Substance: METHOTREXATE
     Indication: RHEUMATOID ARTHRITIS
     Dosage: 15 MG, WEEKLY (QW)
     Route: 048
     Dates: start: 20020102, end: 20100813
  92. DEFLAZACORT [Concomitant]
     Active Substance: DEFLAZACORT
     Indication: RHEUMATOID ARTHRITIS
     Dosage: 6 MG, ONCE DAILY (QD)
     Route: 048
     Dates: start: 20040108, end: 20100813
  93. DEXTROSE. [Concomitant]
     Active Substance: DEXTROSE
     Dosage: 5% DEXTROSE
     Route: 042
     Dates: start: 20100907, end: 20100909
  94. SODIUM CHLORIDE. [Concomitant]
     Active Substance: SODIUM CHLORIDE
     Dosage: 60 ML, ONCE DAILY (QD)
     Route: 042
     Dates: start: 20100928, end: 20100928
  95. POTASSIUM CHLORIDE. [Concomitant]
     Active Substance: POTASSIUM CHLORIDE
     Dosage: 10 ML, EV 2 DAYS (QOD)
     Route: 042
     Dates: start: 20100928, end: 20100930
  96. ACYCLOVIR. [Concomitant]
     Active Substance: ACYCLOVIR
     Indication: MUCOSAL INFLAMMATION
     Dosage: 250 MG, 2X/DAY (BID)
     Route: 042
     Dates: start: 20100816, end: 20100822
  97. 20% ALBUMIN [Concomitant]
     Indication: BLOOD ALBUMIN ABNORMAL
     Dosage: 100 ML, ONCE DAILY (QD)
     Route: 042
     Dates: start: 20100816, end: 20100816
  98. 20% ALBUMIN [Concomitant]
     Dosage: 100 ML, ONCE DAILY (QD)
     Route: 042
     Dates: start: 20100929, end: 20100929
  99. 10% BISOL [Concomitant]
     Dosage: 500 MG, ONCE DAILY (QD)
     Route: 042
     Dates: start: 20100930, end: 20100930
  100. TOBRAMYCIN. [Concomitant]
     Active Substance: TOBRAMYCIN
     Indication: BLEPHARITIS
     Dosage: ROUTE: EYE
     Dates: start: 20100906, end: 20100910
  101. RANITIDINE HYDROCHLORIDE. [Concomitant]
     Active Substance: RANITIDINE HYDROCHLORIDE
     Indication: PROPHYLAXIS
     Dosage: 100 MG, 2X/DAY (BID)
     Route: 042
     Dates: start: 20100928, end: 20100928

REACTIONS (1)
  - Small intestinal obstruction [Recovered/Resolved]

NARRATIVE: CASE EVENT DATE: 20100927
